FAERS Safety Report 8868170 (Version 1)
Quarter: 2012Q4

REPORT INFORMATION
  Report Type: 
  Country: US (occurrence: US)
  Receive Date: 20121026
  Receipt Date: 20121026
  Transmission Date: 20130627
  Serious: No
  Sender: FDA-Public Use
  Company Number: US-AMGEN-USASP2012041142

PATIENT
  Age: 48 Year
  Sex: Female
  Weight: 70.3 kg

DRUGS (11)
  1. ENBREL [Suspect]
     Indication: PRODUCT USED FOR UNKNOWN INDICATION
     Dosage: 50 mg, qwk
     Route: 058
  2. FLEXERIL                           /00428402/ [Concomitant]
     Dosage: 10 mg, UNK
  3. XANAX [Concomitant]
     Dosage: 0.5 mg, UNK
  4. RELAFEN [Concomitant]
     Dosage: 750 mg, UNK
  5. METHOTREXATE [Concomitant]
     Dosage: 2.5 mg, UNK
  6. OMEPRAZOLE [Concomitant]
     Dosage: 40 mg, UNK
  7. FOLIC ACID [Concomitant]
     Dosage: 1 mg, UNK
  8. SPIRULINA                          /01514001/ [Concomitant]
     Dosage: 500 mg, UNK
  9. FISH OIL [Concomitant]
  10. CLONIDINE [Concomitant]
     Dosage: 0.2/24 HR
  11. VITAMIN D /00107901/ [Concomitant]

REACTIONS (2)
  - Fall [Recovered/Resolved]
  - Laceration [Recovered/Resolved]
